FAERS Safety Report 9947331 (Version 1)
Quarter: 2014Q1

REPORT INFORMATION
  Report Type: Report from Study
  Country: US (occurrence: US)
  Receive Date: 20140303
  Receipt Date: 20140303
  Transmission Date: 20141002
  Serious: No
  Sender: FDA-Public Use
  Company Number: US-ABBVIE-13P-163-1062732-00

PATIENT
  Age: 52 Year
  Sex: Female
  Weight: 81.72 kg

DRUGS (8)
  1. HUMIRA [Suspect]
     Indication: RHEUMATOID ARTHRITIS
     Dates: start: 2003, end: 201212
  2. METHOTREXATE [Suspect]
     Indication: RHEUMATOID ARTHRITIS
     Dates: start: 201301, end: 201302
  3. IBUPROFEN [Suspect]
     Indication: PRODUCT USED FOR UNKNOWN INDICATION
     Dates: start: 201302, end: 201302
  4. VOLTAREN [Concomitant]
     Indication: RHEUMATOID ARTHRITIS
  5. DIOVAN HCT [Concomitant]
     Indication: HYPERTENSION
  6. ESTROGEN NOS [Concomitant]
     Indication: HORMONE REPLACEMENT THERAPY
  7. PROVASTIN [Concomitant]
     Indication: HYPERLIPIDAEMIA
  8. THYROID [Concomitant]
     Indication: HYPOTHYROIDISM

REACTIONS (7)
  - Somnolence [Recovered/Resolved]
  - Influenza like illness [Not Recovered/Not Resolved]
  - Pain [Not Recovered/Not Resolved]
  - Rectal haemorrhage [Recovered/Resolved]
  - Abdominal pain upper [Recovered/Resolved]
  - Nausea [Recovered/Resolved]
  - Vomiting [Recovered/Resolved]
